FAERS Safety Report 17426126 (Version 1)
Quarter: 2020Q1

REPORT INFORMATION
  Report Type: Spontaneous
  Country: US (occurrence: US)
  Receive Date: 20200217
  Receipt Date: 20200217
  Transmission Date: 20200409
  Serious: No
  Sender: FDA-Public Use
  Company Number: US-CELGENEUS-USA-20200204096

PATIENT

DRUGS (2)
  1. APREMILAST [Suspect]
     Active Substance: APREMILAST
     Indication: PSORIASIS
     Route: 048
  2. APREMILAST [Suspect]
     Active Substance: APREMILAST
     Dosage: FULL DOSE AT NIGHT AND HALF A PILL IN THE MORNING (DOSE DECREASED)
     Route: 048

REACTIONS (1)
  - Diarrhoea [Not Recovered/Not Resolved]
